FAERS Safety Report 22203257 (Version 1)
Quarter: 2023Q2

REPORT INFORMATION
  Report Type: Spontaneous
  Country: US (occurrence: None)
  Receive Date: 20230412
  Receipt Date: 20230412
  Transmission Date: 20230721
  Serious: Yes (unspecified)
  Sender: FDA-Public Use
  Company Number: None

PATIENT
  Sex: Female

DRUGS (2)
  1. MAKENA [Suspect]
     Active Substance: HYDROXYPROGESTERONE CAPROATE
     Indication: Prophylaxis
     Dosage: FREQUENCY : WEEKLY;?
     Route: 030
     Dates: start: 202211
  2. MAKENA [Suspect]
     Active Substance: HYDROXYPROGESTERONE CAPROATE
     Indication: Premature labour

REACTIONS (5)
  - Migraine [None]
  - Vomiting [None]
  - Urticaria [None]
  - Injection site vesicles [None]
  - Therapy cessation [None]
